FAERS Safety Report 16946637 (Version 1)
Quarter: 2019Q4

REPORT INFORMATION
  Report Type: Report from Study
  Country: CA (occurrence: CA)
  Receive Date: 20191022
  Receipt Date: 20191022
  Transmission Date: 20200122
  Serious: Yes (Other)
  Sender: FDA-Public Use
  Company Number: CA-BRISTOL-MYERS SQUIBB COMPANY-BMS-2018-096234

PATIENT
  Age: 53 Year
  Sex: Male

DRUGS (1)
  1. ABATACEPT [Suspect]
     Active Substance: ABATACEPT
     Indication: RHEUMATOID ARTHRITIS
     Dosage: 750 MILLIGRAM, Q4WK
     Route: 042
     Dates: start: 20180913

REACTIONS (13)
  - Pancreatic carcinoma [Unknown]
  - Secretion discharge [Unknown]
  - Liver disorder [Unknown]
  - Diarrhoea [Unknown]
  - Hyperhidrosis [Unknown]
  - Nasopharyngitis [Unknown]
  - Oropharyngeal pain [Unknown]
  - Fatigue [Unknown]
  - Adverse event [Unknown]
  - Renal disorder [Unknown]
  - Thermal burn [Unknown]
  - Dizziness [Unknown]
  - Vomiting [Unknown]

NARRATIVE: CASE EVENT DATE: 20181215
